FAERS Safety Report 25245602 (Version 1)
Quarter: 2025Q2

REPORT INFORMATION
  Report Type: Spontaneous
  Country: US (occurrence: US)
  Receive Date: 20250428
  Receipt Date: 20250428
  Transmission Date: 20250716
  Serious: Yes (Hospitalization)
  Sender: MYLAN
  Company Number: US-MYLANLABS-2025M1035752

PATIENT
  Age: 35 Year
  Sex: Female

DRUGS (6)
  1. PREDNISONE [Suspect]
     Active Substance: PREDNISONE
     Indication: Pruritus
     Dosage: 40 MILLIGRAM, QD (FOR TWO WEEKS)
  2. CHOLESTYRAMINE [Suspect]
     Active Substance: CHOLESTYRAMINE
     Indication: Pruritus
  3. URSODIOL [Suspect]
     Active Substance: URSODIOL
     Indication: Pruritus
  4. DIPHENHYDRAMINE [Suspect]
     Active Substance: DIPHENHYDRAMINE
     Indication: Pruritus
  5. HYDROXYZINE [Suspect]
     Active Substance: HYDROXYZINE HYDROCHLORIDE
     Indication: Pruritus
  6. NALTREXONE [Suspect]
     Active Substance: NALTREXONE
     Indication: Pruritus

REACTIONS (1)
  - Drug ineffective [Unknown]
